FAERS Safety Report 22372909 (Version 1)
Quarter: 2023Q2

REPORT INFORMATION
  Report Type: Spontaneous
  Country: US (occurrence: None)
  Receive Date: 20230525
  Receipt Date: 20230525
  Transmission Date: 20230721
  Serious: Yes (Other)
  Sender: FDA-Public Use
  Company Number: None

PATIENT
  Age: 43 Year
  Sex: Female
  Weight: 58.05 kg

DRUGS (5)
  1. .DELTA.8-TETRAHYDROCANNABINOL\HERBALS [Suspect]
     Active Substance: .DELTA.8-TETRAHYDROCANNABINOL\HERBALS
     Indication: Stress
     Dosage: OTHER QUANTITY : 1 1;?FREQUENCY : DAILY;?
     Route: 048
     Dates: start: 20230523
  2. Addrerral [Concomitant]
  3. UNSPECIFIED INGREDIENT [Concomitant]
     Active Substance: UNSPECIFIED INGREDIENT
  4. ZINC [Concomitant]
     Active Substance: ZINC
  5. BIOTIN [Concomitant]
     Active Substance: BIOTIN

REACTIONS (5)
  - Dizziness [None]
  - Disorientation [None]
  - Blood pressure decreased [None]
  - Muscular weakness [None]
  - Loss of consciousness [None]

NARRATIVE: CASE EVENT DATE: 20230524
